FAERS Safety Report 17091098 (Version 2)
Quarter: 2019Q4

REPORT INFORMATION
  Report Type: Spontaneous
  Country: PL (occurrence: PL)
  Receive Date: 20191129
  Receipt Date: 20191220
  Transmission Date: 20200122
  Serious: Yes (Hospitalization, Disabling, Other)
  Sender: FDA-Public Use
  Company Number: PL-ABBVIE-19K-129-3174083-00

PATIENT
  Age: 78 Year
  Sex: Male
  Weight: 67 kg

DRUGS (2)
  1. IMBRUVICA [Suspect]
     Active Substance: IBRUTINIB
     Route: 048
  2. IMBRUVICA [Suspect]
     Active Substance: IBRUTINIB
     Indication: MANTLE CELL LYMPHOMA REFRACTORY
     Route: 048
     Dates: start: 201909

REACTIONS (3)
  - Thrombosis [Recovering/Resolving]
  - Eye haemorrhage [Unknown]
  - Subretinal fluid [Recovering/Resolving]

NARRATIVE: CASE EVENT DATE: 20191102
